FAERS Safety Report 15383642 (Version 1)
Quarter: 2018Q3

REPORT INFORMATION
  Report Type: Spontaneous
  Country: US (occurrence: US)
  Receive Date: 20180913
  Receipt Date: 20180913
  Transmission Date: 20181010
  Serious: Yes (Hospitalization, Other)
  Sender: FDA-Public Use
  Company Number: US-GILEAD-2018-0362544

PATIENT
  Age: 61 Year
  Sex: Male
  Weight: 92 kg

DRUGS (1)
  1. YESCARTA [Suspect]
     Active Substance: AXICABTAGENE CILOLEUCEL
     Indication: DIFFUSE LARGE B-CELL LYMPHOMA
     Dosage: 68 ML, ONCE
     Route: 042
     Dates: start: 20180830, end: 20180830

REACTIONS (7)
  - Pyrexia [Unknown]
  - Hypoxia [Unknown]
  - Encephalopathy [Recovered/Resolved]
  - Confusional state [Unknown]
  - Aphasia [Unknown]
  - Cytokine release syndrome [Recovering/Resolving]
  - Hypotension [Unknown]

NARRATIVE: CASE EVENT DATE: 20180831
